FAERS Safety Report 10055181 (Version 1)
Quarter: 2014Q2

REPORT INFORMATION
  Report Type: Report from Study
  Country: JP (occurrence: JP)
  Receive Date: 20140402
  Receipt Date: 20140402
  Transmission Date: 20141212
  Serious: Yes (Other)
  Sender: FDA-Public Use
  Company Number: JP-B.I. PHARMACEUTICALS,INC./RIDGEFIELD-2014-BI-13598NB

PATIENT
  Sex: Male
  Weight: 60 kg

DRUGS (8)
  1. PRAZAXA [Suspect]
     Indication: CEREBROVASCULAR ACCIDENT PROPHYLAXIS
     Dosage: 220 MG
     Route: 048
     Dates: start: 20120625, end: 20130204
  2. AMOBAN [Concomitant]
     Indication: INSOMNIA
     Dosage: 7.5 MG
     Route: 048
  3. ROXATIDINE ACETATE HYDROCHLORIDE [Concomitant]
     Indication: PROPHYLAXIS
     Dosage: 75 MG
     Route: 048
  4. CARDENALIN [Concomitant]
     Dosage: 2 MG
     Route: 048
  5. MAINTATE [Concomitant]
     Dosage: 5 MG
     Route: 048
  6. ACTOS [Concomitant]
     Dosage: 15 MG
     Route: 048
  7. NORVASC [Concomitant]
     Dosage: 2.5 MG
     Route: 048
  8. GLIMICRON [Concomitant]
     Dosage: 20 MG
     Route: 048

REACTIONS (1)
  - Cardiac valve disease [Unknown]
